FAERS Safety Report 5087248-0 (Version None)
Quarter: 2006Q3

REPORT INFORMATION
  Report Type: 
  Country: None (occurrence: None)
  Receive Date: 20060821
  Receipt Date: 20060807
  Transmission Date: 20061208
  Serious: Yes (Hospitalization, Other)
  Sender: FDA-Public Use
  Company Number: HQWYE092107AUG06

PATIENT
  Age: 55 Year
  Sex: Female

DRUGS (13)
  1. INIPOMP (PANTOPRAZOLE DELAYED RELEASE) [Suspect]
     Dosage: ^ DF ^ ORAL
     Route: 048
     Dates: start: 20051212, end: 20060103
  2. DICLOFENAC             (DICLOFENAC, ) [Suspect]
     Indication: ARTHROPATHY
     Dosage: ^DF^ TOPICAL
     Route: 061
     Dates: start: 20051001, end: 20051227
  3. FLUVASTATIN [Suspect]
     Indication: DYSLIPIDAEMIA
     Dosage: ^DF^ ORAL
     Route: 048
     Dates: start: 20051001, end: 20060103
  4. ACETAMINOPHEN [Suspect]
     Indication: ARTHROPATHY
     Dosage: ^DF^ ORAL
     Route: 048
     Dates: start: 20051001, end: 20051227
  5. STRUCTUM                       (CHONDROITIN SULFATE SODIUM, ) [Suspect]
     Dosage: 500 MG 1X PER 1 DAY ORAL
     Route: 048
     Dates: end: 20060103
  6. RANITIDINE [Concomitant]
  7. CORDARONE [Concomitant]
  8. AVLOCARDYL         (PROPRANOLOL HYDROCHLORIDE) [Concomitant]
  9. FUROSEMIDE [Concomitant]
  10. ASPIRIN [Concomitant]
  11. ZESTRIL [Concomitant]
  12. LEVOTHYROXINE SODIUM [Concomitant]
  13. DIGOXIN [Concomitant]

REACTIONS (10)
  - C-REACTIVE PROTEIN INCREASED [None]
  - CHEILITIS [None]
  - CONJUNCTIVITIS [None]
  - DRUG RASH WITH EOSINOPHILIA AND SYSTEMIC SYMPTOMS [None]
  - GAMMA-GLUTAMYLTRANSFERASE INCREASED [None]
  - LYMPHADENOPATHY [None]
  - PHARYNGOLARYNGEAL PAIN [None]
  - PRURITUS [None]
  - RENAL FAILURE [None]
  - SKIN EXFOLIATION [None]
